FAERS Safety Report 20796840 (Version 4)
Quarter: 2024Q2

REPORT INFORMATION
  Report Type: Spontaneous
  Country: US (occurrence: US)
  Receive Date: 20220506
  Receipt Date: 20240405
  Transmission Date: 20240716
  Serious: No
  Sender: FDA-Public Use
  Company Number: US-PFIZER INC-202200091427

PATIENT
  Age: 67 Year
  Sex: Female

DRUGS (1)
  1. PREMPRO [Suspect]
     Active Substance: ESTROGENS, CONJUGATED\MEDROXYPROGESTERONE ACETATE
     Indication: Menopausal symptoms
     Dosage: 0.625 MG

REACTIONS (5)
  - Fatigue [Unknown]
  - Somnolence [Unknown]
  - Pharyngitis streptococcal [Unknown]
  - Intentional product misuse [Unknown]
  - Product dose omission issue [Unknown]
